FAERS Safety Report 7628796-6 (Version None)
Quarter: 2011Q3

REPORT INFORMATION
  Report Type: 
  Country: None (occurrence: None)
  Receive Date: 20110722
  Receipt Date: 20110420
  Transmission Date: 20111222
  Serious: Yes (Other)
  Sender: FDA-Public Use
  Company Number: US-BAYER-201013654NA

PATIENT
  Age: 24 Year
  Sex: Female
  Weight: 113.38 kg

DRUGS (2)
  1. SIMVASTATIN [Concomitant]
  2. YAZ [Suspect]
     Indication: PRODUCT USED FOR UNKNOWN INDICATION
     Dosage: UNK UNK, UNK
     Route: 048
     Dates: start: 20080101

REACTIONS (4)
  - CHOLELITHIASIS [None]
  - HYPOTHYROIDISM [None]
  - HEART RATE IRREGULAR [None]
  - GALLBLADDER DISORDER [None]
